FAERS Safety Report 8667401 (Version 5)
Quarter: 2012Q4

REPORT INFORMATION
  Report Type: 
  Country: US (occurrence: US)
  Receive Date: 20120717
  Receipt Date: 20121015
  Transmission Date: 20130627
  Serious: Yes (Death, Life-Threatening, Hospitalization, Other)
  Sender: FDA-Public Use
  Company Number: US-GENZYME-MOZO-1000727

PATIENT
  Age: 10 Year
  Sex: Female
  Weight: 44 kg

DRUGS (9)
  1. MOZOBIL [Suspect]
     Indication: ACUTE MYELOID LEUKAEMIA
     Dosage: 12 mg/m2, qd
     Route: 042
     Dates: start: 20120604, end: 20120609
  2. CYTARABINE [Concomitant]
     Indication: ACUTE MYELOID LEUKAEMIA
     Dosage: UNK
     Route: 042
     Dates: start: 20120604, end: 20120609
  3. ETOPOSIDE [Concomitant]
     Indication: ACUTE MYELOID LEUKAEMIA
     Dosage: UNK
     Route: 042
     Dates: start: 20120604, end: 20120609
  4. ACETAMINOPHEN [Concomitant]
     Indication: PRODUCT USED FOR UNKNOWN INDICATION
     Dosage: 650 mg, UNK
     Route: 065
     Dates: start: 20120528
  5. MEROPENEM [Concomitant]
     Indication: ANTI-INFECTIVE THERAPY
     Dosage: 850 mg, tid
     Route: 042
     Dates: start: 20120630, end: 20120713
  6. MORPHINE SULFATE [Concomitant]
     Indication: ACUTE MYELOID LEUKAEMIA
     Dosage: 5 mg/ml, UNK
     Route: 065
     Dates: start: 20120702
  7. ONDANSETRON [Concomitant]
     Indication: PRODUCT USED FOR UNKNOWN INDICATION
     Dosage: 6 mg, UNK
     Route: 065
     Dates: start: 20120604
  8. SOLUTIONS FOR PARENTERAL NUTRITION [Concomitant]
     Indication: PARENTERAL NUTRITION
     Dosage: 109 ml, UNK
     Route: 051
     Dates: start: 20120704, end: 20120705
  9. VANCOMYCIN [Concomitant]
     Indication: ANTI-INFECTIVE THERAPY
     Dosage: 1000 mg, tid
     Route: 042
     Dates: start: 20120701, end: 20120713

REACTIONS (7)
  - Death [Fatal]
  - Abscess fungal [Fatal]
  - Splenic infection fungal [Fatal]
  - Pleural effusion [Fatal]
  - Lobar pneumonia [Fatal]
  - Hypokalaemia [Recovered/Resolved]
  - Therapeutic response decreased [Recovered/Resolved]
